FAERS Safety Report 6846297-X (Version None)
Quarter: 2010Q3

REPORT INFORMATION
  Report Type: 
  Country: None (occurrence: None)
  Receive Date: 20100715
  Receipt Date: 20070914
  Transmission Date: 20110219
  Serious: No
  Sender: FDA-Public Use
  Company Number: US-PFIZER INC-2007077800

PATIENT
  Sex: Female
  Weight: 52.6 kg

DRUGS (4)
  1. CHANTIX [Suspect]
     Indication: SMOKING CESSATION THERAPY
     Route: 048
     Dates: start: 20070905
  2. LEVOTHYROXINE SODIUM [Concomitant]
     Indication: THYROID DISORDER
  3. OMACOR [Concomitant]
     Indication: BLOOD CHOLESTEROL ABNORMAL
  4. CALCIUM [Concomitant]

REACTIONS (1)
  - VOMITING [None]
